FAERS Safety Report 6258953-5 (Version None)
Quarter: 2009Q3

REPORT INFORMATION
  Report Type: 
  Country: None (occurrence: None)
  Receive Date: 20090707
  Receipt Date: 20090622
  Transmission Date: 20100115
  Serious: Yes (Other)
  Sender: FDA-Public Use
  Company Number: DE-GENENTECH-285893

PATIENT
  Sex: Female

DRUGS (3)
  1. HERCEPTIN [Suspect]
     Indication: BREAST CANCER METASTATIC
     Dosage: 4 MG/KG, 1/WEEK
     Route: 042
  2. HERCEPTIN [Suspect]
     Dosage: 2 MG/KG, 1/WEEK
  3. VINORELBINE [Suspect]
     Indication: BREAST CANCER METASTATIC
     Dosage: 25 MG/M2, 1/WEEK
     Route: 042

REACTIONS (17)
  - ALOPECIA [None]
  - ARRHYTHMIA [None]
  - CONSTIPATION [None]
  - DIARRHOEA [None]
  - FATIGUE [None]
  - HAEMOGLOBIN [None]
  - HYPERSENSITIVITY [None]
  - INFECTION [None]
  - MOOD ALTERED [None]
  - NAUSEA [None]
  - NEUTROPHIL COUNT [None]
  - PAIN [None]
  - PATHOLOGICAL FRACTURE [None]
  - STOMATITIS [None]
  - SURGERY [None]
  - VOMITING [None]
  - WHITE BLOOD CELL COUNT [None]
